FAERS Safety Report 18215410 (Version 3)
Quarter: 2020Q4

REPORT INFORMATION
  Report Type: Spontaneous
  Country: FR (occurrence: FR)
  Receive Date: 20200901
  Receipt Date: 20201119
  Transmission Date: 20210113
  Serious: Yes (Other)
  Sender: FDA-Public Use
  Company Number: FR-BEH-2020121279

PATIENT
  Age: 44 Year
  Sex: Male
  Weight: 102 kg

DRUGS (3)
  1. PRIVIGEN [Suspect]
     Active Substance: HUMAN IMMUNOGLOBULIN G
     Dosage: TWO MORE COURSES
     Route: 065
  2. PRIVIGEN [Suspect]
     Active Substance: HUMAN IMMUNOGLOBULIN G
     Indication: RADICULOPATHY
     Dosage: 40 GRAM, QD
     Route: 042
     Dates: start: 20200728, end: 20200801
  3. PRIVIGEN [Suspect]
     Active Substance: HUMAN IMMUNOGLOBULIN G
     Dosage: 40.8 GRAMS DAILY FOR 05 DAYS, ONCE A MONTH
     Route: 042
     Dates: start: 20200622, end: 20200626

REACTIONS (5)
  - Skin exfoliation [Recovered/Resolved]
  - Product use in unapproved indication [Unknown]
  - Toxic skin eruption [Recovered/Resolved]
  - No adverse event [Unknown]
  - Drug hypersensitivity [Recovered/Resolved]

NARRATIVE: CASE EVENT DATE: 2020
